FAERS Safety Report 21268266 (Version 1)
Quarter: 2022Q3

REPORT INFORMATION
  Report Type: Spontaneous
  Country: CA (occurrence: CA)
  Receive Date: 20220830
  Receipt Date: 20220830
  Transmission Date: 20221027
  Serious: Yes (Death)
  Sender: FDA-Public Use
  Company Number: CA-BAYER-2022A118774

PATIENT
  Age: 96 Year
  Sex: Female

DRUGS (15)
  1. XARELTO [Suspect]
     Active Substance: RIVAROXABAN
     Indication: Atrial fibrillation
     Dosage: 15 MG, QD
     Route: 048
  2. REFRESH TEARS [Concomitant]
     Active Substance: CARBOXYMETHYLCELLULOSE SODIUM
     Dosage: UNK
     Route: 047
  3. CANRENOATE POTASSIUM [Concomitant]
     Active Substance: CANRENOATE POTASSIUM
     Dosage: UNK
  4. TRAZODONE [Concomitant]
     Active Substance: TRAZODONE HYDROCHLORIDE
  5. LASIX [Concomitant]
     Active Substance: FUROSEMIDE
  6. METOPROLOL [Concomitant]
     Active Substance: METOPROLOL
     Route: 065
  7. MOTILIUM [Concomitant]
     Active Substance: DOMPERIDONE
  8. ALBUTEROL [Concomitant]
     Active Substance: ALBUTEROL
  9. CETIRIZINE HYDROCHLORIDE [Concomitant]
     Active Substance: CETIRIZINE HYDROCHLORIDE
  10. UNSPECIFIED INGREDIENT [Concomitant]
     Active Substance: UNSPECIFIED INGREDIENT
  11. VITAMIN D NOS [Concomitant]
     Active Substance: VITAMIN D NOS
  12. NITRO-DUR [Concomitant]
     Active Substance: NITROGLYCERIN
  13. FLONASE [Concomitant]
     Active Substance: FLUTICASONE PROPIONATE
     Route: 065
  14. PIROXICAM [Concomitant]
     Active Substance: PIROXICAM
  15. GRAVOL [Concomitant]
     Active Substance: DIMENHYDRINATE

REACTIONS (4)
  - Upper gastrointestinal haemorrhage [Fatal]
  - Palliative care [Fatal]
  - Aspiration [Fatal]
  - Abdominal pain [Fatal]
